FAERS Safety Report 7346069-6 (Version None)
Quarter: 2011Q1

REPORT INFORMATION
  Report Type: 
  Country: None (occurrence: None)
  Receive Date: 20110301
  Receipt Date: 20110216
  Transmission Date: 20110831
  Serious: Yes (Other)
  Sender: FDA-Public Use
  Company Number: WAES 1102USA02309

PATIENT
  Age: 76 Year
  Sex: Female

DRUGS (7)
  1. ASPIRIN [Concomitant]
  2. VYTORIN [Suspect]
     Indication: ACUTE CORONARY SYNDROME
     Route: 048
     Dates: start: 20090204
  3. METOPROLOL TARTRATE [Concomitant]
  4. AMITRIPTYLINE HYDROCHLORIDE [Concomitant]
  5. MICARDIS [Concomitant]
  6. PLACEBO [Suspect]
     Indication: LUNG DISORDER
     Route: 048
     Dates: start: 20090204
  7. PLACEBO [Suspect]
     Indication: ACUTE CORONARY SYNDROME
     Route: 048
     Dates: start: 20090204

REACTIONS (2)
  - SYSTEMIC MASTOCYTOSIS [None]
  - THROMBOCYTOPENIA [None]
